FAERS Safety Report 25269479 (Version 1)
Quarter: 2025Q2

REPORT INFORMATION
  Report Type: Spontaneous
  Country: US (occurrence: US)
  Receive Date: 20250505
  Receipt Date: 20250505
  Transmission Date: 20250717
  Serious: No
  Sender: INCYTE
  Company Number: US-EVENT-002558

PATIENT
  Age: 44 Year

DRUGS (2)
  1. JAKAFI [Suspect]
     Active Substance: RUXOLITINIB
     Indication: Polycythaemia vera
     Route: 065
  2. ROPEGINTERFERON ALFA-2B [Suspect]
     Active Substance: ROPEGINTERFERON ALFA-2B
     Indication: Polycythaemia vera

REACTIONS (4)
  - Iron deficiency [Recovering/Resolving]
  - Mean cell volume increased [Unknown]
  - Haematocrit increased [Unknown]
  - Eructation [Unknown]
